FAERS Safety Report 6471692-0 (Version None)
Quarter: 2009Q4

REPORT INFORMATION
  Report Type: 
  Country: None (occurrence: None)
  Receive Date: 20091203
  Receipt Date: 20080512
  Transmission Date: 20100525
  Serious: Yes (Hospitalization, Other)
  Sender: FDA-Public Use
  Company Number: US-ELI_LILLY_AND_COMPANY-US200803003405

PATIENT
  Age: 66 Year
  Sex: Male
  Weight: 71.202 kg

DRUGS (6)
  1. HUMALOG [Suspect]
     Dosage: 7 U, EACH MORNING
  2. HUMALOG [Suspect]
     Dosage: 3 U, AT LUNCH
  3. HUMALOG [Suspect]
     Dosage: 7 U, EACH EVENING
  4. HUMULIN N [Suspect]
     Dosage: 7 U, EACH MORNING
  5. HUMULIN N [Suspect]
     Dosage: 8 U, EACH EVENING
  6. ASPIRIN [Concomitant]
     Dosage: 81 MG, DAILY (1/D)
     Route: 048

REACTIONS (7)
  - BLOOD GLUCOSE INCREASED [None]
  - FEELING ABNORMAL [None]
  - HYPERTENSION [None]
  - INTERNATIONAL NORMALISED RATIO DECREASED [None]
  - MENTAL IMPAIRMENT [None]
  - PROTHROMBIN TIME SHORTENED [None]
  - TRANSIENT ISCHAEMIC ATTACK [None]
